FAERS Safety Report 6649822-7 (Version None)
Quarter: 2010Q1

REPORT INFORMATION
  Report Type: 
  Country: None (occurrence: None)
  Receive Date: 20100325
  Receipt Date: 20100310
  Transmission Date: 20100710
  Serious: Yes (Hospitalization)
  Sender: FDA-Public Use
  Company Number: IT-MYLANLABS-2010S1004032

PATIENT
  Age: 75 Year
  Sex: Female

DRUGS (5)
  1. VALPROIC ACID [Suspect]
     Indication: ABNORMAL BEHAVIOUR
     Dosage: 500 MG/DAY
  2. VALPROIC ACID [Suspect]
     Dosage: 500MG TWICE DAILY
  3. GALANTAMINE HYDROBROMIDE [Concomitant]
     Indication: DEMENTIA ALZHEIMER'S TYPE
     Dosage: 8MG TWICE DAILY
  4. ASPIRIN [Concomitant]
     Dosage: 100 MG/DAY
  5. PANTOPRAZOLE [Concomitant]
     Dosage: 20MG EVERY MORNING

REACTIONS (1)
  - DELIRIUM [None]
